FAERS Safety Report 8924132 (Version 1)
Quarter: 2012Q4

REPORT INFORMATION
  Report Type: 
  Country: US (occurrence: US)
  Receive Date: 20121126
  Receipt Date: 20121126
  Transmission Date: 20130627
  Serious: Yes (Other)
  Sender: FDA-Public Use
  Company Number: US-ABBOTT-12P-163-1010523-00

PATIENT
  Sex: Female

DRUGS (2)
  1. DEPAKENE [Suspect]
     Indication: CONVULSION
  2. KEPPRA [Concomitant]
     Indication: CONVULSION

REACTIONS (6)
  - Toxicity to various agents [Unknown]
  - Overdose [Unknown]
  - Ammonia increased [Unknown]
  - Incoherent [Unknown]
  - Brain injury [Unknown]
  - Blood pressure fluctuation [Unknown]
